FAERS Safety Report 25039177 (Version 1)
Quarter: 2025Q1

REPORT INFORMATION
  Report Type: Spontaneous
  Country: US (occurrence: US)
  Receive Date: 20250305
  Receipt Date: 20250305
  Transmission Date: 20250409
  Serious: No
  Sender: ABBVIE
  Company Number: US-ABBVIE-6158624

PATIENT

DRUGS (1)
  1. ACUVAIL [Suspect]
     Active Substance: KETOROLAC TROMETHAMINE
     Indication: Product used for unknown indication
     Route: 047

REACTIONS (2)
  - Allergic reaction to excipient [Unknown]
  - Allergic oedema [Unknown]
